FAERS Safety Report 5092747-1 (Version None)
Quarter: 2006Q3

REPORT INFORMATION
  Report Type: 
  Country: None (occurrence: None)
  Receive Date: 20060828
  Receipt Date: 20060814
  Transmission Date: 20061208
  Serious: Yes (Other)
  Sender: FDA-Public Use
  Company Number: 2004229765US

PATIENT
  Age: 14 Year
  Sex: Male
  Weight: 33.4 kg

DRUGS (6)
  1. GENOTROPIN [Suspect]
     Indication: HYPOPITUITARISM
     Dosage: SEE IMAGE
     Route: 058
     Dates: start: 20031230, end: 20040112
  2. GENOTROPIN [Suspect]
     Indication: HYPOPITUITARISM
     Dosage: SEE IMAGE
     Route: 058
     Dates: start: 20040201, end: 20040207
  3. GENOTROPIN [Suspect]
     Indication: HYPOPITUITARISM
     Dosage: SEE IMAGE
     Route: 058
     Dates: start: 20040208, end: 20040717
  4. LEVOXYL [Concomitant]
  5. DDAVP [Concomitant]
  6. CORTEF [Concomitant]

REACTIONS (2)
  - ASTROCYTOMA, LOW GRADE [None]
  - NEOPLASM RECURRENCE [None]
